FAERS Safety Report 15533177 (Version 1)
Quarter: 2018Q4

REPORT INFORMATION
  Report Type: Spontaneous
  Country: AU (occurrence: AU)
  Receive Date: 20181019
  Receipt Date: 20181019
  Transmission Date: 20190205
  Serious: Yes (Other)
  Sender: FDA-Public Use
  Company Number: AU-B.I. PHARMACEUTICALS,INC./RIDGEFIELD-2018-BI-050097

PATIENT
  Age: 77 Year
  Sex: Male

DRUGS (1)
  1. FLOMAXTRA [Suspect]
     Active Substance: TAMSULOSIN HYDROCHLORIDE
     Indication: PROSTATOMEGALY
     Dosage: FORMULATION: MODIFIED-RELEASE TABLET, DAILY DOSE:400 FEG
     Route: 048
     Dates: start: 20180525, end: 20180530

REACTIONS (2)
  - Constipation [Recovered/Resolved]
  - Dysuria [Recovered/Resolved]

NARRATIVE: CASE EVENT DATE: 20180527
